FAERS Safety Report 15477856 (Version 1)
Quarter: 2018Q4

REPORT INFORMATION
  Report Type: Spontaneous
  Country: US (occurrence: US)
  Receive Date: 20181002
  Receipt Date: 20181002
  Transmission Date: 20190205
  Serious: Yes (Death)
  Sender: FDA-Public Use
  Company Number: None

PATIENT
  Age: 52 Year
  Sex: Female

DRUGS (1)
  1. TEMOZOLOMIDE 100MG [Suspect]
     Active Substance: TEMOZOLOMIDE
     Dosage: 100MG QD FOF 5DAYS OF 28 DAY CYCLE PO
     Route: 048
     Dates: start: 20180606

REACTIONS (1)
  - Death [None]

NARRATIVE: CASE EVENT DATE: 2018
